FAERS Safety Report 5291819-6 (Version None)
Quarter: 2007Q2

REPORT INFORMATION
  Report Type: 
  Country: None (occurrence: None)
  Receive Date: 20070406
  Receipt Date: 20070406
  Transmission Date: 20071010
  Serious: No
  Sender: FDA-Public Use
  Company Number: None

PATIENT
  Sex: Female

DRUGS (7)
  1. DOXORUBICIN HCL [Suspect]
     Indication: CHEMOTHERAPY
     Dosage: 60 MG/M2
     Dates: start: 20000301, end: 20000601
  2. CYCLOPHOSPHAMIDE [Suspect]
     Indication: CHEMOTHERAPY
     Dosage: 3 WEEKS X 4 CYCLES (IV)
     Route: 042
     Dates: start: 20000301, end: 20000601
  3. TAXOTERE [Suspect]
     Indication: CHEMOTHERAPY
     Dosage: 35 MG/M2 IV, QWEEK
     Route: 042
     Dates: start: 20000601, end: 20000801
  4. ATARAX [Concomitant]
  5. ATIVAN [Concomitant]
  6. ZOFRAN [Concomitant]
  7. CLARITIN [Concomitant]

REACTIONS (8)
  - DRUG ERUPTION [None]
  - HYPERSENSITIVITY [None]
  - PAIN OF SKIN [None]
  - RASH MACULO-PAPULAR [None]
  - RASH MORBILLIFORM [None]
  - RASH PRURITIC [None]
  - RASH VESICULAR [None]
  - VIRAL RASH [None]
